FAERS Safety Report 18560443 (Version 1)
Quarter: 2020Q4

REPORT INFORMATION
  Report Type: Spontaneous
  Country: US (occurrence: US)
  Receive Date: 20201130
  Receipt Date: 20201130
  Transmission Date: 20210114
  Serious: Yes (Hospitalization, Other)
  Sender: FDA-Public Use
  Company Number: US-009507513-2011USA013994

PATIENT
  Age: 74 Year
  Sex: Female
  Weight: 63.5 kg

DRUGS (14)
  1. PRINIVIL [Suspect]
     Active Substance: LISINOPRIL
     Indication: BLOOD PRESSURE ABNORMAL
     Dosage: 10 MILLIGRAM, QD
     Route: 048
  2. SEROQUEL [Suspect]
     Active Substance: QUETIAPINE FUMARATE
     Dosage: 50 MILLIGRAM, QD
     Route: 048
  3. SEROQUEL [Suspect]
     Active Substance: QUETIAPINE FUMARATE
     Indication: MAJOR DEPRESSION
     Dosage: UNK
     Route: 048
     Dates: start: 201207, end: 2012
  4. SEROQUEL [Suspect]
     Active Substance: QUETIAPINE FUMARATE
     Indication: DRUG THERAPY
  5. SEROQUEL [Suspect]
     Active Substance: QUETIAPINE FUMARATE
     Dosage: 300 MILLIGRAM, QD
     Route: 048
     Dates: start: 2012, end: 20140616
  6. XANAX [Concomitant]
     Active Substance: ALPRAZOLAM
     Indication: ANXIETY
     Dosage: 0.5, 3 DAILY
  7. SEROQUEL [Suspect]
     Active Substance: QUETIAPINE FUMARATE
     Dosage: 100 MILLIGRAM, QD
     Route: 048
  8. PRILOSEC [Suspect]
     Active Substance: OMEPRAZOLE MAGNESIUM
     Indication: HERNIA
  9. ZOFRAN [Concomitant]
     Active Substance: ONDANSETRON HYDROCHLORIDE
     Dosage: 4 MILLIGRAM, Q6H
  10. AMLODIPINE [Concomitant]
     Active Substance: AMLODIPINE BESYLATE
     Indication: BLOOD PRESSURE ABNORMAL
     Dosage: 5 MILLIGRAM, QD
  11. SEROQUEL [Suspect]
     Active Substance: QUETIAPINE FUMARATE
     Indication: DRUG THERAPY
     Dosage: 300 MILLIGRAM, QD
     Route: 048
     Dates: start: 201108, end: 201207
  12. SEROQUEL [Suspect]
     Active Substance: QUETIAPINE FUMARATE
     Indication: MAJOR DEPRESSION
     Dosage: 1 1/2 TABLET TO GET TO HER 300 MG DOSE
     Route: 048
     Dates: start: 2012, end: 201312
  13. PRILOSEC [Suspect]
     Active Substance: OMEPRAZOLE MAGNESIUM
     Indication: GASTROINTESTINAL DISORDER
     Dosage: 40 MILLIGRAM, QD
     Route: 048
     Dates: start: 2011
  14. NARDIL [Concomitant]
     Active Substance: PHENELZINE SULFATE
     Indication: MAJOR DEPRESSION
     Dosage: 5, TWO BID
     Dates: start: 1987

REACTIONS (26)
  - Tooth loss [Unknown]
  - Adverse event [Unknown]
  - Adverse drug reaction [Unknown]
  - Illness [Unknown]
  - Intentional product misuse [Recovered/Resolved]
  - Product dose omission issue [Not Recovered/Not Resolved]
  - Ulcer [Unknown]
  - Malaise [Recovered/Resolved]
  - Loss of personal independence in daily activities [Recovered/Resolved]
  - Dyspepsia [Unknown]
  - Fall [Unknown]
  - Hallucination [Unknown]
  - Concussion [Unknown]
  - Nausea [Not Recovered/Not Resolved]
  - Depression [Unknown]
  - Product use in unapproved indication [Not Recovered/Not Resolved]
  - Therapeutic product effect incomplete [Unknown]
  - Dysgeusia [Unknown]
  - Nightmare [Unknown]
  - Somnolence [Unknown]
  - Wrong product administered [Recovered/Resolved]
  - Jaw fracture [Unknown]
  - Gastritis [Unknown]
  - Body height decreased [Unknown]
  - Mastication disorder [Unknown]
  - Dysphonia [Unknown]

NARRATIVE: CASE EVENT DATE: 2011
